FAERS Safety Report 12628606 (Version 3)
Quarter: 2017Q2

REPORT INFORMATION
  Report Type: Spontaneous
  Country: US (occurrence: US)
  Receive Date: 20160808
  Receipt Date: 20170512
  Transmission Date: 20170830
  Serious: No
  Sender: FDA-Public Use
  Company Number: US-JAZZ-2016-US-003959

PATIENT
  Age: 37 Year
  Sex: Female

DRUGS (31)
  1. XYREM [Suspect]
     Active Substance: SODIUM OXYBATE
     Indication: NARCOLEPSY
     Dosage: 2.25 G, BID
     Route: 048
     Dates: start: 201101, end: 201103
  2. VITAMIN D [Concomitant]
     Active Substance: CHOLECALCIFEROL
  3. CALCIUM + MAGNESIUM [Concomitant]
  4. CALMS FORTE [Concomitant]
  5. LAMICTAL XR [Concomitant]
     Active Substance: LAMOTRIGINE
  6. FISH OIL 1-A-DAY + VITAMIN D3 [Concomitant]
  7. ZINC CHELATE [Concomitant]
  8. PROZAC [Concomitant]
     Active Substance: FLUOXETINE HYDROCHLORIDE
  9. OFLOXACIN. [Concomitant]
     Active Substance: OFLOXACIN
  10. KIRKLAND SIGNATURE ALLER TEC ALLERGY [Concomitant]
     Active Substance: CETIRIZINE HYDROCHLORIDE
  11. MAGNESIUM OXIDE. [Concomitant]
     Active Substance: MAGNESIUM OXIDE
  12. EPINEPHRINE. [Concomitant]
     Active Substance: EPINEPHRINE
  13. CATS CLAW [Concomitant]
  14. L-GLUTAMINE [Concomitant]
  15. MULTI VITA BETS WITH FLUORIDE [Concomitant]
  16. XYREM [Suspect]
     Active Substance: SODIUM OXYBATE
     Dosage: 4.5 G, BID
     Route: 048
     Dates: start: 201103
  17. VITAMIN B12 [Concomitant]
     Active Substance: CYANOCOBALAMIN
  18. ALOE VERA [Concomitant]
     Active Substance: ALOE VERA LEAF
  19. LICORICE ROOT [Concomitant]
     Active Substance: LICORICE
  20. AZO [Concomitant]
     Active Substance: PHENAZOPYRIDINE HYDROCHLORIDE
     Indication: PRODUCT USED FOR UNKNOWN INDICATION
  21. MARCAINE [Concomitant]
     Active Substance: BUPIVACAINE HYDROCHLORIDE
  22. SEPTOCAINE [Concomitant]
     Active Substance: ARTICAINE HYDROCHLORIDE\EPINEPHRINE BITARTRATE
  23. CHOLINE CITRATE [Concomitant]
  24. VENLAFAXINE HCL [Concomitant]
     Active Substance: VENLAFAXINE HYDROCHLORIDE
  25. GLUCOSAMINE [Concomitant]
     Active Substance: GLUCOSAMINE
  26. MIRENA [Concomitant]
     Active Substance: LEVONORGESTREL
  27. LECITHIN [Concomitant]
     Active Substance: LECITHIN
  28. MARSHMALLOW [Concomitant]
     Active Substance: ALCOHOL
  29. ELM [Concomitant]
     Active Substance: ELM
  30. VICODIN [Concomitant]
     Active Substance: ACETAMINOPHEN\HYDROCODONE BITARTRATE
  31. KEPPRA [Concomitant]
     Active Substance: LEVETIRACETAM

REACTIONS (2)
  - Hypertonic bladder [Not Recovered/Not Resolved]
  - Ovarian cyst [Unknown]

NARRATIVE: CASE EVENT DATE: 201101
